FAERS Safety Report 13593998 (Version 1)
Quarter: 2017Q2

REPORT INFORMATION
  Report Type: Spontaneous
  Country: US (occurrence: US)
  Receive Date: 20170530
  Receipt Date: 20170530
  Transmission Date: 20170830
  Serious: No
  Sender: FDA-Public Use
  Company Number: US-BAYER-2017-097220

PATIENT
  Age: 88 Year
  Sex: Female
  Weight: 52 kg

DRUGS (9)
  1. VITAMIN D [Concomitant]
     Active Substance: CHOLECALCIFEROL
  2. CALCIUM [Concomitant]
     Active Substance: CALCIUM
  3. TYLENOL [DIPHENHYDRAMINE HYDROCHLORIDE,PARACETAMOL] [Concomitant]
     Active Substance: ACETAMINOPHEN\DIPHENHYDRAMINE HYDROCHLORIDE
  4. METHOTREXATE [METHOTREXATE] [Concomitant]
     Active Substance: METHOTREXATE
  5. FISH OIL [Concomitant]
     Active Substance: FISH OIL
  6. ZOCOR [Concomitant]
     Active Substance: SIMVASTATIN
  7. FOLIC ACID. [Concomitant]
     Active Substance: FOLIC ACID
  8. MIRALAX [Suspect]
     Active Substance: POLYETHYLENE GLYCOL 3350
     Indication: GASTROINTESTINAL DISORDER
     Dosage: 1 DF, UNK
     Route: 048
  9. TRAMADOL. [Concomitant]
     Active Substance: TRAMADOL

REACTIONS (2)
  - Muscle spasms [Not Recovered/Not Resolved]
  - Faeces soft [Not Recovered/Not Resolved]

NARRATIVE: CASE EVENT DATE: 201704
